FAERS Safety Report 5188369-4 (Version None)
Quarter: 2006Q4

REPORT INFORMATION
  Report Type: 
  Country: None (occurrence: None)
  Receive Date: 20061221
  Receipt Date: 20060921
  Transmission Date: 20070319
  Serious: Yes (Hospitalization)
  Sender: FDA-Public Use
  Company Number: JP-GILEAD-2006-0010259

PATIENT
  Sex: Male

DRUGS (6)
  1. VIREAD [Suspect]
     Indication: HIV INFECTION
     Route: 048
     Dates: start: 20040615, end: 20050413
  2. EPIVIR [Concomitant]
     Indication: HIV INFECTION
     Dates: start: 19960528, end: 20050413
  3. REYATAZ [Concomitant]
     Dates: start: 20040615, end: 20050413
  4. NORVIR [Concomitant]
     Dates: start: 20040615, end: 20050413
  5. LIPANTIL [Concomitant]
     Dates: start: 20040401, end: 20050413
  6. RECOMBINATE [Concomitant]
     Dates: start: 20040401

REACTIONS (1)
  - LYMPHOMA [None]
